FAERS Safety Report 4570464-1 (Version None)
Quarter: 2005Q1

REPORT INFORMATION
  Report Type: 
  Country: None (occurrence: None)
  Receive Date: 20050204
  Receipt Date: 20041108
  Transmission Date: 20050727
  Serious: Yes (Hospitalization)
  Sender: FDA-Public Use
  Company Number: CA-MERCK-0411CAN00084

PATIENT
  Sex: Female

DRUGS (5)
  1. VIOXX [Suspect]
     Indication: OSTEOARTHRITIS
     Route: 048
     Dates: start: 20030101, end: 20040810
  2. PRINIVIL [Concomitant]
     Indication: HYPERTENSION
     Route: 048
  3. BETAHISTINE HYDROCHLORIDE [Concomitant]
     Indication: MENIERE'S DISEASE
     Route: 065
  4. FUROSEMIDE [Concomitant]
     Indication: FLUID RETENTION
     Route: 065
  5. LEVOTHYROXINE SODIUM [Concomitant]
     Indication: HYPOTHYROIDISM
     Route: 065

REACTIONS (2)
  - EPISTAXIS [None]
  - FALL [None]
